FAERS Safety Report 6944553-8 (Version None)
Quarter: 2010Q3

REPORT INFORMATION
  Report Type: 
  Country: None (occurrence: None)
  Receive Date: 20100827
  Receipt Date: 20100813
  Transmission Date: 20110219
  Serious: Yes (Hospitalization, Other)
  Sender: FDA-Public Use
  Company Number: CA-ELI_LILLY_AND_COMPANY-CA201008004745

PATIENT
  Age: 88 Year
  Sex: Female

DRUGS (8)
  1. FORTEO [Suspect]
     Indication: OSTEOPOROSIS
     Dosage: 20 UG, DAILY (1/D)
     Route: 058
     Dates: start: 20081123, end: 20100807
  2. FUROSEMIDE [Concomitant]
  3. POTASSIUM [Concomitant]
  4. AMIODARONE [Concomitant]
  5. WARFARIN SODIUM [Concomitant]
  6. VIT D [Concomitant]
  7. CALCIUM [Concomitant]
  8. DIGOXIN [Concomitant]

REACTIONS (4)
  - CEREBRAL HAEMORRHAGE [None]
  - FALL [None]
  - HEAD INJURY [None]
  - OXYGEN SATURATION DECREASED [None]
